FAERS Safety Report 6027249-9 (Version None)
Quarter: 2009Q1

REPORT INFORMATION
  Report Type: 
  Country: None (occurrence: None)
  Receive Date: 20090105
  Receipt Date: 20081223
  Transmission Date: 20090719
  Serious: Yes (Death)
  Sender: FDA-Public Use
  Company Number: US-AVENTIS-200816888EU

PATIENT
  Age: 2 Month

DRUGS (4)
  1. PSEUDOEPHEDRINE HCL [Suspect]
     Dosage: DOSE: UNK
  2. IBUPROFEN [Suspect]
     Dosage: DOSE: UNK
  3. DOXYLAMINE [Suspect]
     Dosage: DOSE: UNK
  4. DIPHENHYDRAMINE HCL [Suspect]
     Dosage: DOSE: UNK

REACTIONS (6)
  - BODY TEMPERATURE INCREASED [None]
  - CARDIAC ARREST [None]
  - CORNEAL OEDEMA [None]
  - MULTIPLE DRUG OVERDOSE [None]
  - PUPIL FIXED [None]
  - VICTIM OF HOMICIDE [None]
